FAERS Safety Report 10205326 (Version 1)
Quarter: 2014Q2

REPORT INFORMATION
  Report Type: Spontaneous
  Country: US (occurrence: US)
  Receive Date: 20140529
  Receipt Date: 20140529
  Transmission Date: 20141212
  Serious: No
  Sender: FDA-Public Use
  Company Number: US-SA-2014SA040132

PATIENT
  Age: 67 Year
  Sex: Female

DRUGS (5)
  1. SOLOSTAR [Suspect]
     Indication: DEVICE THERAPY
     Dates: start: 20140327
  2. SOLOSTAR [Suspect]
     Indication: DEVICE THERAPY
     Dates: start: 20140327
  3. LANTUS SOLOSTAR [Suspect]
     Indication: TYPE 2 DIABETES MELLITUS
     Dosage: DOSE:5 UNIT(S)
     Route: 058
     Dates: start: 20140327
  4. LANTUS SOLOSTAR [Suspect]
     Indication: TYPE 2 DIABETES MELLITUS
     Dosage: DOSE:5 UNIT(S)
     Route: 058
     Dates: start: 20140327
  5. METFORMIN [Concomitant]

REACTIONS (4)
  - Blood glucose increased [Unknown]
  - Drug ineffective [Unknown]
  - Injury associated with device [Unknown]
  - Therapeutic response changed [Unknown]
